FAERS Safety Report 12875173 (Version 1)
Quarter: 2016Q4

REPORT INFORMATION
  Report Type: Report from Study
  Country: PL (occurrence: PL)
  Receive Date: 20161024
  Receipt Date: 20161024
  Transmission Date: 20170207
  Serious: Yes (Hospitalization, Disabling, Other)
  Sender: FDA-Public Use
  Company Number: PL-BAXTER-2016BAX052717

PATIENT
  Age: 70 Year
  Sex: Male

DRUGS (42)
  1. OBINUTUZUMAB [Suspect]
     Active Substance: OBINUTUZUMAB
     Dosage: C1D8; ACTUAL MAXIMAL INFUSION RATE: 400
     Route: 042
     Dates: start: 20151123, end: 20151123
  2. DEXAMETHASONE. [Suspect]
     Active Substance: DEXAMETHASONE
     Indication: APLASIA PURE RED CELL
     Dosage: SINGLE DOSE
     Route: 048
     Dates: start: 20151116, end: 20151116
  3. DEXAMETHASONE. [Suspect]
     Active Substance: DEXAMETHASONE
     Route: 042
     Dates: start: 20151116, end: 20151117
  4. DIPYRONE [Concomitant]
     Active Substance: DIPYRONE
     Indication: PRODUCT USED FOR UNKNOWN INDICATION
     Dosage: SINGLE DOSE
     Route: 042
     Dates: start: 20151116, end: 20151116
  5. PARACETAMOL [Concomitant]
     Active Substance: ACETAMINOPHEN
     Dosage: SINGLE DOSE
     Route: 048
     Dates: start: 20151123, end: 20151123
  6. CHLORAMBUCIL [Suspect]
     Active Substance: CHLORAMBUCIL
     Dosage: C2D1
     Route: 048
     Dates: start: 20151214, end: 20151214
  7. DEXAMETHASONE. [Suspect]
     Active Substance: DEXAMETHASONE
     Dosage: SINGLE DOSE
     Route: 042
     Dates: start: 20151130, end: 20151130
  8. CLEMASTIN [Concomitant]
     Active Substance: CLEMASTINE
     Dosage: SINGLE DOSE
     Route: 042
     Dates: start: 20151214, end: 20151214
  9. FUROSEMIDE. [Concomitant]
     Active Substance: FUROSEMIDE
     Indication: PROPHYLAXIS
     Route: 042
     Dates: start: 20151021, end: 20151028
  10. PARACETAMOL [Concomitant]
     Active Substance: ACETAMINOPHEN
     Dosage: SINGLE DOSE
     Route: 048
     Dates: start: 20151130, end: 20151130
  11. ENDOXAN [Suspect]
     Active Substance: CYCLOPHOSPHAMIDE
     Indication: APLASIA PURE RED CELL
     Dosage: 4 CYCLES
     Route: 065
  12. DEXAMETHASONE. [Suspect]
     Active Substance: DEXAMETHASONE
     Indication: PROPHYLAXIS
     Dosage: 4 CYCLES
     Route: 065
  13. FUROSEMIDE. [Concomitant]
     Active Substance: FUROSEMIDE
     Route: 042
     Dates: start: 20151116, end: 20151118
  14. PARACETAMOL [Concomitant]
     Active Substance: ACETAMINOPHEN
     Indication: CREATININE RENAL CLEARANCE DECREASED
     Dosage: SINGLE DOSE
     Route: 042
     Dates: start: 20151025, end: 20151025
  15. MAGNESIUM SULFATE. [Concomitant]
     Active Substance: MAGNESIUM SULFATE
     Indication: PROPHYLAXIS
     Dosage: SINGLE DOSE
     Route: 042
     Dates: start: 20151227, end: 20160102
  16. AZITHROMYCIN ANHYDROUS. [Concomitant]
     Active Substance: AZITHROMYCIN ANHYDROUS
     Indication: PRODUCT USED FOR UNKNOWN INDICATION
     Route: 048
     Dates: start: 20160203, end: 20160205
  17. RIVANOL [Concomitant]
     Active Substance: ETHACRIDINE LACTATE
     Indication: PRODUCT USED FOR UNKNOWN INDICATION
     Route: 065
  18. RITUXIMAB [Suspect]
     Active Substance: RITUXIMAB
     Indication: APLASIA PURE RED CELL
     Dosage: 4 CYCLES
     Route: 065
  19. CHLORAMBUCIL [Suspect]
     Active Substance: CHLORAMBUCIL
     Dosage: C1D15
     Route: 048
     Dates: start: 20151130, end: 20151130
  20. ALLOPURINOL. [Concomitant]
     Active Substance: ALLOPURINOL
     Indication: PROPHYLAXIS
     Route: 048
     Dates: start: 20151021
  21. CIPROFLOXACIN. [Concomitant]
     Active Substance: CIPROFLOXACIN
     Indication: PRODUCT USED FOR UNKNOWN INDICATION
     Route: 048
     Dates: start: 20151227, end: 20160102
  22. CHLORAMBUCIL [Suspect]
     Active Substance: CHLORAMBUCIL
     Indication: CHRONIC LYMPHOCYTIC LEUKAEMIA
     Dosage: C1D1
     Route: 048
     Dates: start: 20151116, end: 20151116
  23. ENCORTON [Concomitant]
     Active Substance: PREDNISONE
     Indication: PRODUCT USED FOR UNKNOWN INDICATION
     Route: 048
     Dates: start: 20160222, end: 20160303
  24. POTASSIUM [Concomitant]
     Active Substance: POTASSIUM
     Indication: PRODUCT USED FOR UNKNOWN INDICATION
     Route: 065
  25. PHENYLBUTAZON [Concomitant]
     Indication: PRODUCT USED FOR UNKNOWN INDICATION
     Route: 065
  26. ENDOXAN [Suspect]
     Active Substance: CYCLOPHOSPHAMIDE
     Indication: OFF LABEL USE
  27. OBINUTUZUMAB [Suspect]
     Active Substance: OBINUTUZUMAB
     Dosage: C1D15;ACTUAL MAXIMAL INFUSION RATE: 400
     Route: 042
     Dates: start: 20151130, end: 20151130
  28. OBINUTUZUMAB [Suspect]
     Active Substance: OBINUTUZUMAB
     Dosage: C2D1;ACTUAL MAXIMAL INFUSION RATE: 400, LAST DOSE PRIOR TO SAE
     Route: 042
     Dates: start: 20151214, end: 20151214
  29. CHLORAMBUCIL [Suspect]
     Active Substance: CHLORAMBUCIL
     Dosage: C2D15, LAST DOSE PRIOR TO SAE
     Route: 048
     Dates: start: 20160111, end: 20160111
  30. DEXAMETHASONE. [Suspect]
     Active Substance: DEXAMETHASONE
     Dosage: SINGLE DOSE
     Route: 042
     Dates: start: 20151123, end: 20151123
  31. FUROSEMIDE. [Concomitant]
     Active Substance: FUROSEMIDE
     Route: 048
     Dates: start: 20151114, end: 20151115
  32. FUROSEMIDE. [Concomitant]
     Active Substance: FUROSEMIDE
     Dosage: SINGLE DOSE
     Route: 048
     Dates: start: 20151227, end: 20160111
  33. PARACETAMOL [Concomitant]
     Active Substance: ACETAMINOPHEN
     Route: 048
     Dates: start: 20151116, end: 20151117
  34. PARACETAMOL [Concomitant]
     Active Substance: ACETAMINOPHEN
     Dosage: SINGLE DOSE
     Route: 048
     Dates: start: 20151214, end: 20151214
  35. DEXAMETHASONE. [Suspect]
     Active Substance: DEXAMETHASONE
     Dosage: SINGLE DOSE
     Route: 048
     Dates: start: 20151214, end: 20151214
  36. CLEMASTIN [Concomitant]
     Active Substance: CLEMASTINE
     Indication: PROPHYLAXIS
     Route: 042
     Dates: start: 20151116, end: 20151117
  37. CLEMASTIN [Concomitant]
     Active Substance: CLEMASTINE
     Dosage: SINGLE DOSE
     Route: 042
     Dates: start: 20151123, end: 20151123
  38. CLEMASTIN [Concomitant]
     Active Substance: CLEMASTINE
     Dosage: SINGLE DOSE
     Route: 042
     Dates: start: 20151130, end: 20151130
  39. OBINUTUZUMAB [Suspect]
     Active Substance: OBINUTUZUMAB
     Indication: CHRONIC LYMPHOCYTIC LEUKAEMIA
     Dosage: VIAL, C1D1;ACTUAL MAXIMAL INFUSION RATE: 12.5
     Route: 042
     Dates: start: 20151116, end: 20151116
  40. OBINUTUZUMAB [Suspect]
     Active Substance: OBINUTUZUMAB
     Dosage: C1D2:ACTUAL MAXIMAL INFUSION RATE: 400
     Route: 042
     Dates: start: 20151117, end: 20151117
  41. TAMSULOSINI HYDROCHLORIDUM [Concomitant]
     Indication: BENIGN PROSTATIC HYPERPLASIA
     Route: 048
     Dates: start: 201206
  42. ACICLOVIR [Concomitant]
     Active Substance: ACYCLOVIR
     Indication: PROPHYLAXIS
     Route: 048
     Dates: start: 20151023

REACTIONS (4)
  - Anaemia [Not Recovered/Not Resolved]
  - Chronic lymphocytic leukaemia [Not Recovered/Not Resolved]
  - Pneumonia [Recovered/Resolved]
  - Agranulocytosis [Recovered/Resolved]

NARRATIVE: CASE EVENT DATE: 201208
